FAERS Safety Report 24380299 (Version 3)
Quarter: 2024Q4

REPORT INFORMATION
  Report Type: Other
  Country: US (occurrence: US)
  Receive Date: 20240930
  Receipt Date: 20241111
  Transmission Date: 20250115
  Serious: No
  Sender: TRAVERE THERAPEUTICS
  Company Number: US-TRAVERE-2024TVT00889

PATIENT
  Sex: Female

DRUGS (1)
  1. FILSPARI [Suspect]
     Active Substance: SPARSENTAN
     Indication: IgA nephropathy
     Route: 048
     Dates: start: 202408

REACTIONS (4)
  - Gastrooesophageal reflux disease [None]
  - Abdominal discomfort [Unknown]
  - Frequent bowel movements [Unknown]
  - Dyspepsia [Unknown]
